FAERS Safety Report 24131629 (Version 2)
Quarter: 2024Q3

REPORT INFORMATION
  Report Type: Spontaneous
  Country: IT (occurrence: IT)
  Receive Date: 20240724
  Receipt Date: 20240829
  Transmission Date: 20241016
  Serious: Yes (Hospitalization, Other)
  Sender: MYLAN
  Company Number: IT-VELOXIS PHARMACEUTICALS, INC.-2024-VEL-00371

PATIENT
  Age: 28 Year
  Sex: Female

DRUGS (3)
  1. MYCOPHENOLATE MOFETIL [Suspect]
     Active Substance: MYCOPHENOLATE MOFETIL
     Indication: Lupus nephritis
     Dosage: UNK
     Route: 065
     Dates: end: 202103
  2. PREDNISONE [Suspect]
     Active Substance: PREDNISONE
     Indication: Lupus nephritis
     Dosage: UNK
     Route: 065
     Dates: end: 202103
  3. TACROLIMUS [Suspect]
     Active Substance: TACROLIMUS
     Indication: Lupus nephritis
     Dosage: UNK
     Route: 065
     Dates: end: 202103

REACTIONS (8)
  - Immunosuppressant drug level increased [Recovered/Resolved]
  - Lupus nephritis [Recovered/Resolved]
  - Disease recurrence [Recovered/Resolved]
  - COVID-19 pneumonia [Recovered/Resolved]
  - COVID-19 [Recovered/Resolved]
  - Asthenia [Recovered/Resolved]
  - Oedema [Recovered/Resolved]
  - Hypertension [Recovered/Resolved]

NARRATIVE: CASE EVENT DATE: 20170101
